FAERS Safety Report 14256008 (Version 1)
Quarter: 2017Q4

REPORT INFORMATION
  Report Type: Spontaneous
  Country: US (occurrence: US)
  Receive Date: 20171206
  Receipt Date: 20171206
  Transmission Date: 20180321
  Serious: Yes (Other)
  Sender: FDA-Public Use
  Company Number: US-PFIZER INC-2017520889

PATIENT
  Age: 9 Year
  Sex: Male
  Weight: 45 kg

DRUGS (1)
  1. ADVIL [Suspect]
     Active Substance: IBUPROFEN
     Indication: HEADACHE
     Dosage: 200MG 1 LIQUIGEL BY MOUTH
     Route: 048
     Dates: start: 201708, end: 20171128

REACTIONS (4)
  - Loss of consciousness [Recovered/Resolved]
  - Peripheral swelling [Recovered/Resolved]
  - Nausea [Unknown]
  - Hyperhidrosis [Unknown]

NARRATIVE: CASE EVENT DATE: 20171128
